FAERS Safety Report 16725889 (Version 1)
Quarter: 2019Q3

REPORT INFORMATION
  Report Type: Spontaneous
  Country: US (occurrence: US)
  Receive Date: 20190821
  Receipt Date: 20190821
  Transmission Date: 20191005
  Serious: Yes (Other)
  Sender: FDA-Public Use
  Company Number: US-ASTRAZENECA-2019SF16731

PATIENT
  Age: 572 Month
  Sex: Male
  Weight: 78 kg

DRUGS (3)
  1. LISINOPRIL. [Suspect]
     Active Substance: LISINOPRIL
     Indication: PREHYPERTENSION
     Route: 048
  2. OMEPRAZOLE. [Suspect]
     Active Substance: OMEPRAZOLE
     Indication: GASTROOESOPHAGEAL REFLUX DISEASE
     Route: 048
  3. BYDUREON [Suspect]
     Active Substance: EXENATIDE
     Indication: DIABETES MELLITUS
     Route: 058
     Dates: start: 201908

REACTIONS (11)
  - Low density lipoprotein [Unknown]
  - Injection site haemorrhage [Recovered/Resolved]
  - Blood glucose increased [Unknown]
  - Muscle atrophy [Unknown]
  - Glucose tolerance impaired [Unknown]
  - Guillain-Barre syndrome [Unknown]
  - Prehypertension [Unknown]
  - Needle issue [Unknown]
  - Weight fluctuation [Recovering/Resolving]
  - Injection site pain [Recovered/Resolved]
  - Injection site extravasation [Unknown]

NARRATIVE: CASE EVENT DATE: 201712
